FAERS Safety Report 12754408 (Version 2)
Quarter: 2016Q3

REPORT INFORMATION
  Report Type: Report from Study
  Country: BE (occurrence: BE)
  Receive Date: 20160916
  Receipt Date: 20160919
  Transmission Date: 20161109
  Serious: Yes (Death)
  Sender: FDA-Public Use
  Company Number: PHHY2016BE126116

PATIENT
  Age: 80 Year
  Sex: Female

DRUGS (1)
  1. ELTROMBOPAG [Suspect]
     Active Substance: ELTROMBOPAG
     Indication: APLASTIC ANAEMIA
     Dosage: 50 MG, QD
     Route: 065
     Dates: start: 20160623

REACTIONS (3)
  - Traumatic intracranial haemorrhage [Fatal]
  - Thrombocytopenia [Fatal]
  - Disease progression [Fatal]

NARRATIVE: CASE EVENT DATE: 20160808
